FAERS Safety Report 25983094 (Version 1)
Quarter: 2025Q4

REPORT INFORMATION
  Report Type: Spontaneous
  Country: CN (occurrence: CN)
  Receive Date: 20251031
  Receipt Date: 20251031
  Transmission Date: 20260117
  Serious: Yes (Other)
  Sender: SUNNY PHARMTECH INC.
  Company Number: CN-Sunny Pharmtech Inc.-000055

PATIENT
  Age: 70 Year
  Sex: Female

DRUGS (1)
  1. CYCLOPHOSPHAMIDE [Suspect]
     Active Substance: CYCLOPHOSPHAMIDE
     Indication: Anti-neutrophil cytoplasmic antibody positive vasculitis

REACTIONS (1)
  - Cytomegalovirus colitis [Unknown]
